FAERS Safety Report 7992473-2 (Version None)
Quarter: 2011Q4

REPORT INFORMATION
  Report Type: 
  Country: None (occurrence: None)
  Receive Date: 20111219
  Receipt Date: 20111205
  Transmission Date: 20120403
  Serious: Yes (Life-Threatening, Other)
  Sender: FDA-Public Use
  Company Number: PHHY2011JP88352

PATIENT
  Age: 81 Year
  Sex: Female

DRUGS (5)
  1. DOXORUBICIN HYDROCHLORIDE [Suspect]
     Dosage: UNK UKN, UNK
     Route: 042
     Dates: start: 20090301, end: 20090301
  2. CYCLOPHOSPHAMIDE [Suspect]
     Dosage: UNK UKN, UNK
     Route: 042
     Dates: start: 20090301, end: 20090301
  3. FLUOROURACIL [Suspect]
     Dosage: UNK UKN, UNK
     Route: 042
     Dates: start: 20090301, end: 20090301
  4. FEMARA [Concomitant]
  5. ZOMETA [Suspect]
     Indication: METASTASES TO BONE
     Route: 041

REACTIONS (3)
  - GENERAL PHYSICAL HEALTH DETERIORATION [None]
  - BONE MARROW FAILURE [None]
  - PAIN [None]
